FAERS Safety Report 7958852-4 (Version None)
Quarter: 2011Q4

REPORT INFORMATION
  Report Type: 
  Country: None (occurrence: None)
  Receive Date: 20111206
  Receipt Date: 20111201
  Transmission Date: 20120403
  Serious: Yes (Other)
  Sender: FDA-Public Use
  Company Number: US-VERTEX PHARMACEUTICALS INC.-AE-2011-004302

PATIENT
  Sex: Female
  Weight: 81.266 kg

DRUGS (3)
  1. RIBAVIRIN [Concomitant]
     Indication: HEPATITIS C
  2. PEGASYS [Concomitant]
     Indication: HEPATITIS C
     Dates: start: 20110818
  3. INCIVEK [Suspect]
     Indication: HEPATITIS C
     Dates: start: 20110819

REACTIONS (1)
  - WHITE BLOOD CELL COUNT DECREASED [None]
